FAERS Safety Report 9435129 (Version 2)
Quarter: 2013Q3

REPORT INFORMATION
  Report Type: Spontaneous
  Country: KR (occurrence: KR)
  Receive Date: 20130801
  Receipt Date: 20130815
  Transmission Date: 20140515
  Serious: Yes (Hospitalization, Other)
  Sender: FDA-Public Use
  Company Number: KR-PFIZER INC-2013217840

PATIENT
  Age: 19 Year
  Sex: Female

DRUGS (1)
  1. DIFLUCAN [Suspect]
     Dosage: 3 DF(TABLETS), UNK
     Route: 048
     Dates: start: 20130725

REACTIONS (8)
  - Coma [Recovered/Resolved]
  - Convulsion [Recovered/Resolved]
  - Tremor [Recovered/Resolved]
  - Vital functions abnormal [Recovered/Resolved]
  - Pyrexia [Recovered/Resolved]
  - Dyspnoea [Recovered/Resolved]
  - Visual impairment [Recovered/Resolved]
  - Headache [Recovered/Resolved]
